FAERS Safety Report 18240187 (Version 4)
Quarter: 2021Q1

REPORT INFORMATION
  Report Type: Report from Study
  Country: None (occurrence: US)
  Receive Date: 20200908
  Receipt Date: 20210223
  Transmission Date: 20210419
  Serious: Yes (Hospitalization)
  Sender: FDA-Public Use
  Company Number: US-ABBVIE-19K-163-3190538-00

PATIENT
  Age: 77 Year
  Sex: Male
  Weight: 81.72 kg

DRUGS (5)
  1. COVID?19 VACCINE NOS. [Concomitant]
     Active Substance: COVID-19 VACCINE NOS
     Dosage: MANUFACTURER?PFIZER
     Route: 030
     Dates: start: 20210216, end: 20210216
  2. COVID?19 VACCINE NOS. [Concomitant]
     Active Substance: COVID-19 VACCINE NOS
     Indication: COVID-19 IMMUNISATION
     Dosage: MANUFACTURER?PFIZER
     Route: 030
     Dates: start: 202101, end: 202101
  3. HUMIRA [Suspect]
     Active Substance: ADALIMUMAB
     Indication: COLITIS ULCERATIVE
     Dosage: CITRATE FREE
     Route: 058
     Dates: start: 20191114, end: 202001
  4. HUMIRA [Suspect]
     Active Substance: ADALIMUMAB
     Indication: CROHN^S DISEASE
     Dosage: CITRATE FREE
     Route: 058
     Dates: start: 2020
  5. HUMIRA [Suspect]
     Active Substance: ADALIMUMAB
     Indication: RHEUMATOID ARTHRITIS

REACTIONS (10)
  - Wrong technique in product usage process [Unknown]
  - Fungal infection [Recovering/Resolving]
  - Insomnia [Not Recovered/Not Resolved]
  - Nephrolithiasis [Unknown]
  - Food intolerance [Recovered/Resolved]
  - Colitis ulcerative [Unknown]
  - Faeces soft [Recovering/Resolving]
  - Abdominal distension [Recovering/Resolving]
  - Rectal abscess [Recovered/Resolved]
  - Haemorrhoids [Recovered/Resolved]

NARRATIVE: CASE EVENT DATE: 2019
